FAERS Safety Report 5708387-4 (Version None)
Quarter: 2008Q2

REPORT INFORMATION
  Report Type: 
  Country: None (occurrence: None)
  Receive Date: 20080417
  Receipt Date: 20080408
  Transmission Date: 20081010
  Serious: Yes (Hospitalization, Other)
  Sender: FDA-Public Use
  Company Number: US-ELI_LILLY_AND_COMPANY-US200804002313

PATIENT
  Sex: Female
  Weight: 89.342 kg

DRUGS (5)
  1. BYETTA [Suspect]
     Dates: start: 20070601
  2. NOVOLOG [Concomitant]
     Indication: DIABETES MELLITUS
     Dosage: U, 3/D
  3. LANTUS [Concomitant]
     Indication: DIABETES MELLITUS
     Dosage: 60 U, DAILY (1/D)
  4. SYMLIN [Concomitant]
     Dosage: 60 UG, 3/D
     Dates: start: 20080308, end: 20080314
  5. SYMLIN [Concomitant]
     Dosage: 120 UG, 3/D
     Dates: start: 20080315

REACTIONS (7)
  - BLOOD GLUCOSE INCREASED [None]
  - CHEST PAIN [None]
  - CORONARY ARTERY DISEASE [None]
  - FATIGUE [None]
  - MYOCARDIAL INFARCTION [None]
  - RASH [None]
  - WEIGHT DECREASED [None]
